FAERS Safety Report 21367502 (Version 1)
Quarter: 2022Q3

REPORT INFORMATION
  Report Type: Spontaneous
  Country: FR (occurrence: FR)
  Receive Date: 20220923
  Receipt Date: 20220923
  Transmission Date: 20221027
  Serious: Yes (Hospitalization)
  Sender: FDA-Public Use
  Company Number: None

PATIENT
  Age: 63 Year
  Sex: Male

DRUGS (8)
  1. PACLITAXEL [Suspect]
     Active Substance: PACLITAXEL
     Indication: Nasal sinus cancer
     Dosage: FREQUENCY TIME : 1 WEEK, DURATION : 1 MONTH
     Dates: start: 202205, end: 202206
  2. AMIODARONE [Suspect]
     Active Substance: AMIODARONE
     Indication: Ventricular tachycardia
     Dosage: THERAPY START DATE : NASK, FREQUENCY TIME : 1 DAY
     Dates: end: 20220727
  3. SITAGLIPTIN [Suspect]
     Active Substance: SITAGLIPTIN
     Indication: Diabetes mellitus
     Dosage: FREQUENCY TIME : 1 DAY
  4. BISOPROLOL FUMARATE [Suspect]
     Active Substance: BISOPROLOL FUMARATE
     Indication: Ventricular tachycardia
     Dosage: FREQUENCY TIME : 1 DAY
  5. METFORMIN [Suspect]
     Active Substance: METFORMIN HYDROCHLORIDE
     Indication: Diabetes mellitus
     Dosage: FREQUENCY TIME : 1 DAY
  6. XARELTO [Suspect]
     Active Substance: RIVAROXABAN
     Indication: Ventricular tachycardia
     Dosage: FREQUENCY TIME : 1 DAY
  7. OPDIVO [Suspect]
     Active Substance: NIVOLUMAB
     Indication: Nasal sinus cancer
     Dosage: FREQUENCY TIME : 1 CYCLICAL, DURATION : 1 YEAR
     Dates: start: 202005, end: 202204
  8. CRESTOR [Suspect]
     Active Substance: ROSUVASTATIN CALCIUM
     Indication: Product used for unknown indication
     Dosage: FREQUENCY TIME  : 1 DAY

REACTIONS (1)
  - Interstitial lung disease [Not Recovered/Not Resolved]

NARRATIVE: CASE EVENT DATE: 20220601
